FAERS Safety Report 16404958 (Version 1)
Quarter: 2019Q2

REPORT INFORMATION
  Report Type: Spontaneous
  Country: US (occurrence: US)
  Receive Date: 20190607
  Receipt Date: 20190607
  Transmission Date: 20190711
  Serious: No
  Sender: FDA-Public Use
  Company Number: US-B.I. PHARMACEUTICALS,INC./RIDGEFIELD-2019-BI-025009

PATIENT
  Age: 56 Year
  Sex: Male

DRUGS (3)
  1. ATORVASTATIN [Concomitant]
     Active Substance: ATORVASTATIN
     Indication: BLOOD CHOLESTEROL INCREASED
     Dosage: ONE TWICE A DAY;  FORM STRENGTH: 40 MG; FORMULATION: TABLET
     Route: 048
  2. SPIRIVA [Suspect]
     Active Substance: TIOTROPIUM BROMIDE MONOHYDRATE
     Indication: CHRONIC OBSTRUCTIVE PULMONARY DISEASE
     Dosage: ACTION: DRUG WITHDRAWN
     Route: 055
     Dates: start: 20190525, end: 20190531
  3. LOSARTAN. [Concomitant]
     Active Substance: LOSARTAN
     Indication: HYPERTENSION
     Dosage: ONE TABLET DAILY;  FORMULATION: TABLET;
     Route: 048

REACTIONS (3)
  - Constipation [Not Recovered/Not Resolved]
  - Micturition frequency decreased [Not Recovered/Not Resolved]
  - Urine output decreased [Not Recovered/Not Resolved]

NARRATIVE: CASE EVENT DATE: 20190531
